FAERS Safety Report 12316381 (Version 2)
Quarter: 2016Q2

REPORT INFORMATION
  Report Type: Spontaneous
  Country: US (occurrence: US)
  Receive Date: 20160429
  Receipt Date: 20160510
  Transmission Date: 20160815
  Serious: No
  Sender: FDA-Public Use
  Company Number: US-ASTRAZENECA-2016SE44267

PATIENT
  Age: 21977 Day
  Sex: Female
  Weight: 86.2 kg

DRUGS (4)
  1. CRESTOR [Suspect]
     Active Substance: ROSUVASTATIN CALCIUM
     Indication: BLOOD CHOLESTEROL INCREASED
     Route: 048
     Dates: start: 20160416, end: 20160416
  2. CRESTOR [Suspect]
     Active Substance: ROSUVASTATIN CALCIUM
     Indication: BLOOD CHOLESTEROL INCREASED
     Route: 048
     Dates: start: 20160414
  3. CITALOPRAM [Concomitant]
     Active Substance: CITALOPRAM HYDROBROMIDE
     Indication: HOT FLUSH
     Route: 048
  4. CRESTOR [Suspect]
     Active Substance: ROSUVASTATIN CALCIUM
     Indication: BLOOD CHOLESTEROL INCREASED
     Route: 048
     Dates: start: 20160415

REACTIONS (15)
  - Ear pain [Unknown]
  - Dysphonia [Unknown]
  - Abdominal pain [Unknown]
  - Back pain [Unknown]
  - Dyspnoea [Unknown]
  - Bladder pain [Unknown]
  - Abdominal distension [Unknown]
  - Pain in extremity [Unknown]
  - Constipation [Unknown]
  - Restless legs syndrome [Unknown]
  - Decreased appetite [Unknown]
  - Intentional product misuse [Unknown]
  - Dry mouth [Unknown]
  - Urine abnormality [Unknown]
  - Insomnia [Unknown]

NARRATIVE: CASE EVENT DATE: 20160414
